FAERS Safety Report 4465737-7 (Version None)
Quarter: 2004Q3

REPORT INFORMATION
  Report Type: 
  Country: None (occurrence: None)
  Receive Date: 20040929
  Receipt Date: 20040929
  Transmission Date: 20050211
  Serious: Yes (Life-Threatening, Hospitalization)
  Sender: FDA-Public Use
  Company Number: None

PATIENT
  Age: 45 Year
  Sex: Female
  Weight: 77.4 kg

DRUGS (3)
  1. KARIVA [Suspect]
     Indication: MENORRHAGIA
     Dates: start: 20040601, end: 20040902
  2. IMITREX [Concomitant]
  3. TYLENOL W/ CODEINE NO. 3 [Concomitant]

REACTIONS (3)
  - ABDOMINAL PAIN [None]
  - HEADACHE [None]
  - PULMONARY EMBOLISM [None]
